FAERS Safety Report 16837188 (Version 1)
Quarter: 2019Q3

REPORT INFORMATION
  Report Type: Spontaneous
  Country: US (occurrence: US)
  Receive Date: 20190923
  Receipt Date: 20190923
  Transmission Date: 20191005
  Serious: Yes (Other)
  Sender: FDA-Public Use
  Company Number: US-NOVEN PHARMACEUTICALS, INC.-US2019000333

PATIENT

DRUGS (5)
  1. COMBIPATCH [Suspect]
     Active Substance: ESTRADIOL\NORETHINDRONE ACETATE
     Indication: FATIGUE
     Dosage: CUTTING 0.05/0.14 MG PATCH INTO HALF, UNKNOWN
     Route: 062
     Dates: start: 2019, end: 2019
  2. COMBIPATCH [Suspect]
     Active Substance: ESTRADIOL\NORETHINDRONE ACETATE
     Indication: HORMONE REPLACEMENT THERAPY
     Dosage: 0.05/0.14 MG, UNKNOWN
     Route: 062
     Dates: start: 201901, end: 2019
  3. COMBIPATCH [Suspect]
     Active Substance: ESTRADIOL\NORETHINDRONE ACETATE
     Indication: FATIGUE
     Dosage: 0.05/0.14 MG, UNKNOWN
     Route: 062
     Dates: start: 201905, end: 2019
  4. COMBIPATCH [Suspect]
     Active Substance: ESTRADIOL\NORETHINDRONE ACETATE
     Dosage: CUTTING 0.05/0.14 MG PATCH INTO HALF, UNKNOWN
     Route: 062
     Dates: start: 2019, end: 2019
  5. COMBIPATCH [Suspect]
     Active Substance: ESTRADIOL\NORETHINDRONE ACETATE
     Dosage: 0.05/0.14 MG, UNKNOWN
     Route: 062
     Dates: start: 2019, end: 201906

REACTIONS (23)
  - Therapeutic product effect increased [Recovered/Resolved]
  - Hormone level abnormal [Unknown]
  - Application site pain [Unknown]
  - Application site pruritus [Not Recovered/Not Resolved]
  - Breast pain [Recovered/Resolved]
  - Product administered at inappropriate site [Recovered/Resolved]
  - Therapy cessation [Not Recovered/Not Resolved]
  - Nipple disorder [Unknown]
  - High density lipoprotein decreased [Unknown]
  - Metrorrhagia [Unknown]
  - Off label use [Recovered/Resolved]
  - Application site erythema [Not Recovered/Not Resolved]
  - Application site urticaria [Not Recovered/Not Resolved]
  - Intentional product use issue [Recovered/Resolved]
  - Application site mass [Unknown]
  - Blood triglycerides increased [Unknown]
  - Application site swelling [Unknown]
  - Wrong technique in product usage process [Recovered/Resolved]
  - Application site haematoma [Not Recovered/Not Resolved]
  - Dermatitis contact [Unknown]
  - Application site discolouration [Not Recovered/Not Resolved]
  - Application site hypersensitivity [Unknown]
  - Application site induration [Not Recovered/Not Resolved]

NARRATIVE: CASE EVENT DATE: 2019
